FAERS Safety Report 8361305-5 (Version None)
Quarter: 2012Q2

REPORT INFORMATION
  Report Type: 
  Country: None (occurrence: None)
  Receive Date: 20120514
  Receipt Date: 20120504
  Transmission Date: 20120825
  Serious: Yes (Hospitalization)
  Sender: FDA-Public Use
  Company Number: 2012SP024229

PATIENT
  Age: 24 Year
  Sex: Female
  Weight: 52.6173 kg

DRUGS (1)
  1. NUVARING [Suspect]
     Indication: CONTRACEPTION
     Dosage: ;QM;
     Dates: start: 20120430, end: 20120503

REACTIONS (16)
  - COUGH [None]
  - HEADACHE [None]
  - CHILLS [None]
  - HYPERHIDROSIS [None]
  - FEELING HOT [None]
  - THROAT IRRITATION [None]
  - FALL [None]
  - CHEST DISCOMFORT [None]
  - DIZZINESS [None]
  - PAIN IN EXTREMITY [None]
  - FEELING COLD [None]
  - URTICARIA [None]
  - DYSPNOEA [None]
  - HYPOAESTHESIA [None]
  - FEELING ABNORMAL [None]
  - SKIN IRRITATION [None]
